FAERS Safety Report 5388219-7 (Version None)
Quarter: 2007Q3

REPORT INFORMATION
  Report Type: 
  Country: None (occurrence: None)
  Receive Date: 20070716
  Receipt Date: 20070123
  Transmission Date: 20080115
  Serious: No
  Sender: FDA-Public Use
  Company Number: A0636424A

PATIENT
  Age: 51 Year

DRUGS (1)
  1. NICORETTE [Suspect]

REACTIONS (2)
  - MALAISE [None]
  - NAUSEA [None]
